FAERS Safety Report 7451976-X (Version None)
Quarter: 2011Q2

REPORT INFORMATION
  Report Type: 
  Country: None (occurrence: None)
  Receive Date: 20110502
  Receipt Date: 20110425
  Transmission Date: 20111010
  Serious: Yes (Death)
  Sender: FDA-Public Use
  Company Number: MX-BRISTOL-MYERS SQUIBB COMPANY-15698160

PATIENT
  Age: 91 Year
  Sex: Female
  Weight: 90 kg

DRUGS (1)
  1. COAPROVEL TABS 150MG/12.5MG [Suspect]
     Indication: HYPERTENSION
     Dosage: 1 DF:1 TABS/DAY
     Route: 048
     Dates: end: 20110406

REACTIONS (1)
  - ASPHYXIA [None]
